FAERS Safety Report 4919036-7 (Version None)
Quarter: 2006Q1

REPORT INFORMATION
  Report Type: 
  Country: None (occurrence: None)
  Receive Date: 20060222
  Receipt Date: 20051214
  Transmission Date: 20060701
  Serious: Yes (Hospitalization, Other)
  Sender: FDA-Public Use
  Company Number: US-MERCK-0512USA02381

PATIENT
  Age: 49 Year
  Sex: Female
  Weight: 82 kg

DRUGS (2)
  1. VIOXX [Suspect]
     Indication: ARTHRITIS
     Route: 048
     Dates: start: 20000831, end: 20040913
  2. TYLENOL [Concomitant]
     Route: 065

REACTIONS (18)
  - ARTERIOSCLEROSIS [None]
  - BLOOD IMMUNOGLOBULIN M INCREASED [None]
  - CARDIOLIPIN ANTIBODY POSITIVE [None]
  - CEREBRAL ATROPHY [None]
  - CEREBROVASCULAR ACCIDENT [None]
  - CHRONIC OBSTRUCTIVE PULMONARY DISEASE [None]
  - DYSPNOEA [None]
  - EMPHYSEMA [None]
  - FALL [None]
  - HAEMATOCHEZIA [None]
  - JOINT INJURY [None]
  - MENTAL DISORDER [None]
  - MICROANGIOPATHY [None]
  - MIGRAINE [None]
  - MULTIPLE SCLEROSIS [None]
  - PROCTALGIA [None]
  - SLEEP APNOEA SYNDROME [None]
  - TRANSIENT ISCHAEMIC ATTACK [None]
